FAERS Safety Report 24088608 (Version 1)
Quarter: 2024Q3

REPORT INFORMATION
  Report Type: Spontaneous
  Country: US (occurrence: US)
  Receive Date: 20240715
  Receipt Date: 20240715
  Transmission Date: 20241017
  Serious: Yes (Hospitalization)
  Sender: DR REDDYS
  Company Number: US-DRL-USA-LIT/USA/24/0010347

PATIENT
  Age: 2 Year
  Sex: Male

DRUGS (1)
  1. TREPROSTINIL [Suspect]
     Active Substance: TREPROSTINIL
     Indication: Pulmonary arterial hypertension
     Route: 058

REACTIONS (2)
  - Complication associated with device [Unknown]
  - Skin reaction [Unknown]
